FAERS Safety Report 5419970-8 (Version None)
Quarter: 2007Q3

REPORT INFORMATION
  Report Type: 
  Country: None (occurrence: None)
  Receive Date: 20070820
  Receipt Date: 20070809
  Transmission Date: 20080115
  Serious: Yes (Disabling)
  Sender: FDA-Public Use
  Company Number: GB-AMGEN-UK195329

PATIENT
  Sex: Male
  Weight: 67.5 kg

DRUGS (13)
  1. ARANESP [Suspect]
     Indication: RENAL FAILURE CHRONIC
     Route: 058
     Dates: start: 20060331, end: 20070713
  2. NEORECORMON [Concomitant]
     Route: 058
     Dates: start: 20060824, end: 20060924
  3. VENOFER [Concomitant]
     Route: 042
     Dates: start: 20060126, end: 20060818
  4. ASPIRIN [Concomitant]
     Route: 048
  5. FELODIPINE [Concomitant]
     Route: 048
  6. INSULIN [Concomitant]
     Route: 065
  7. FRUSEMIDE [Concomitant]
     Route: 048
  8. ATARAX [Concomitant]
     Route: 048
  9. DOXAZOSIN MESYLATE [Concomitant]
     Route: 048
  10. PERINDOPRIL ERBUMINE [Concomitant]
     Route: 048
  11. OMEPRAZOLE [Concomitant]
     Route: 048
  12. CALCICHEW [Concomitant]
     Route: 048
  13. ATORVASTATIN CALCIUM [Concomitant]

REACTIONS (2)
  - ARTERIOVENOUS FISTULA SITE COMPLICATION [None]
  - KOEBNER PHENOMENON [None]
